FAERS Safety Report 4948503-5 (Version None)
Quarter: 2006Q1

REPORT INFORMATION
  Report Type: 
  Country: None (occurrence: None)
  Receive Date: 20060320
  Receipt Date: 20050930
  Transmission Date: 20060701
  Serious: Yes (Hospitalization, Other)
  Sender: FDA-Public Use
  Company Number: US-MERCK-0510USA02136

PATIENT
  Age: 68 Year
  Sex: Female

DRUGS (1)
  1. VIOXX [Suspect]
     Route: 048
     Dates: start: 19990101, end: 20040101

REACTIONS (29)
  - ABDOMINAL PAIN [None]
  - ANGINA PECTORIS [None]
  - AORTIC VALVE STENOSIS [None]
  - CARDIAC ANEURYSM [None]
  - CARDIAC FAILURE CONGESTIVE [None]
  - CARDIAC VALVE DISEASE [None]
  - CEREBRAL INFARCTION [None]
  - CEREBROVASCULAR ACCIDENT [None]
  - CHEST PAIN [None]
  - COLONIC STENOSIS [None]
  - CORONARY ARTERY DISEASE [None]
  - DIVERTICULUM [None]
  - DYSPNOEA [None]
  - FLANK PAIN [None]
  - INSOMNIA [None]
  - MALAISE [None]
  - MUSCLE SPASMS [None]
  - MUSCULOSKELETAL CHEST PAIN [None]
  - PARKINSONISM [None]
  - PHLEBITIS [None]
  - POLYNEUROPATHY [None]
  - RENAL COLIC [None]
  - SPINAL DEFORMITY [None]
  - SYNCOPE [None]
  - TACHYARRHYTHMIA [None]
  - URETHRAL STENOSIS [None]
  - URINARY TRACT INFECTION [None]
  - VERTIGO [None]
  - WEIGHT DECREASED [None]
